FAERS Safety Report 10136299 (Version 1)
Quarter: 2014Q2

REPORT INFORMATION
  Report Type: Spontaneous
  Country: US (occurrence: US)
  Receive Date: 20140429
  Receipt Date: 20140429
  Transmission Date: 20141212
  Serious: Yes (Hospitalization, Other)
  Sender: FDA-Public Use
  Company Number: US-JNJFOC-20140413815

PATIENT
  Age: 80 Year
  Sex: Male

DRUGS (7)
  1. ZYTIGA [Suspect]
     Indication: PROSTATE CANCER
     Dosage: 250 MG (DURATION 3 MONTHS)
     Route: 048
  2. PREDNISONE [Concomitant]
     Route: 048
  3. ASPIRIN [Concomitant]
     Route: 065
  4. CALCIUM WITH VITAMIN D [Concomitant]
     Route: 065
  5. HYDROCHLOROTHIAZIDE [Concomitant]
     Route: 065
  6. METFORMIN [Concomitant]
     Route: 065
  7. MULTIVITAMINS [Concomitant]
     Route: 065

REACTIONS (3)
  - Fall [Unknown]
  - Weight decreased [Unknown]
  - Muscular weakness [Unknown]
